FAERS Safety Report 8013358-1 (Version None)
Quarter: 2011Q4

REPORT INFORMATION
  Report Type: 
  Country: None (occurrence: None)
  Receive Date: 20111229
  Receipt Date: 20111226
  Transmission Date: 20120403
  Serious: No
  Sender: FDA-Public Use
  Company Number: PHHY2011CN47186

PATIENT
  Sex: Female

DRUGS (2)
  1. CALCIUM ACETATE [Concomitant]
     Dosage: UNK
  2. MIACALCIN [Suspect]
     Dosage: UNK
     Route: 045

REACTIONS (1)
  - EPISTAXIS [None]
